FAERS Safety Report 20136113 (Version 1)
Quarter: 2021Q4

REPORT INFORMATION
  Report Type: Spontaneous
  Country: US (occurrence: None)
  Receive Date: 20211201
  Receipt Date: 20211201
  Transmission Date: 20220303
  Serious: No
  Sender: FDA-Public Use
  Company Number: None

PATIENT
  Age: 35 Year
  Sex: Male
  Weight: 85.28 kg

DRUGS (1)
  1. DIROXIMEL FUMARATE [Suspect]
     Active Substance: DIROXIMEL FUMARATE
     Indication: Multiple sclerosis
     Dates: start: 20201208, end: 20210110

REACTIONS (5)
  - Urticaria [None]
  - Pruritus [None]
  - Skin burning sensation [None]
  - Ocular hyperaemia [None]
  - Cyanosis [None]

NARRATIVE: CASE EVENT DATE: 20210110
